FAERS Safety Report 19255006 (Version 1)
Quarter: 2021Q2

REPORT INFORMATION
  Report Type: Spontaneous
  Country: US (occurrence: US)
  Receive Date: 20210513
  Receipt Date: 20210513
  Transmission Date: 20210717
  Serious: No
  Sender: FDA-Public Use
  Company Number: US-PFIZER INC-2021402962

PATIENT

DRUGS (3)
  1. LIDOCAINE HCL [Suspect]
     Active Substance: LIDOCAINE HYDROCHLORIDE
  2. HYALURONIC ACID [Suspect]
     Active Substance: HYALURONIC ACID
  3. TOZINAMERAN. [Suspect]
     Active Substance: TOZINAMERAN
     Indication: COVID-19 IMMUNISATION
     Dosage: 1ST DOSE, SINGLE
     Dates: start: 202101, end: 202101

REACTIONS (3)
  - Swelling face [Recovering/Resolving]
  - Mass [Not Recovered/Not Resolved]
  - Hypoaesthesia [Recovering/Resolving]
